FAERS Safety Report 7543498-2 (Version None)
Quarter: 2011Q2

REPORT INFORMATION
  Report Type: 
  Country: None (occurrence: None)
  Receive Date: 20110613
  Receipt Date: 20110531
  Transmission Date: 20111010
  Serious: Yes (Other)
  Sender: FDA-Public Use
  Company Number: DE-UCBSA-034371

PATIENT
  Age: 54 Year
  Sex: Female

DRUGS (10)
  1. LODOTRA [Concomitant]
  2. ERGOCALCIFEROL [Concomitant]
  3. CIMZIA [Suspect]
     Indication: SPONDYLITIS
     Route: 058
  4. ISOPROLOL [Concomitant]
  5. OMEPRAZOL 20MG [Concomitant]
     Dosage: 20MG
  6. LEVOTHYROXINE SODIUM [Concomitant]
  7. MTX 12.5MG [Concomitant]
     Dosage: 12.5MG
  8. FOLSAURE 5MG [Concomitant]
     Dosage: 5MG
  9. MIRTAZAPINE [Concomitant]
  10. MORPHINE [Concomitant]
     Dosage: 120MG

REACTIONS (1)
  - THROMBOSIS [None]
